FAERS Safety Report 5073538-4 (Version None)
Quarter: 2006Q3

REPORT INFORMATION
  Report Type: 
  Country: None (occurrence: None)
  Receive Date: 20060803
  Receipt Date: 20060724
  Transmission Date: 20061208
  Serious: Yes (Death, Other)
  Sender: FDA-Public Use
  Company Number: 2006088889

PATIENT
  Age: 88 Year
  Sex: Female

DRUGS (1)
  1. PREGABALIN (PREGABALIN) [Suspect]
     Indication: NEURALGIA
     Dosage: 150 MG (75 MG, 2 IN 1 D), ORAL
     Route: 048
     Dates: start: 20060529, end: 20060618

REACTIONS (6)
  - BRAIN DAMAGE [None]
  - BRAIN STEM SYNDROME [None]
  - DEPRESSED LEVEL OF CONSCIOUSNESS [None]
  - ENCEPHALOPATHY [None]
  - HYPERTENSIVE CRISIS [None]
  - SOMNOLENCE [None]
